FAERS Safety Report 8100681-5 (Version None)
Quarter: 2012Q1

REPORT INFORMATION
  Report Type: 
  Country: None (occurrence: None)
  Receive Date: 20120129
  Receipt Date: 20111118
  Transmission Date: 20120608
  Serious: No
  Sender: FDA-Public Use
  Company Number: US-ABBOTT-11P-163-0700115-00

PATIENT
  Sex: Female
  Weight: 77.18 kg

DRUGS (8)
  1. HYOSCYAMINE [Concomitant]
     Indication: PRODUCT USED FOR UNKNOWN INDICATION
     Dosage: 1-2 Q 12 HOURS
  2. HUMIRA [Suspect]
     Indication: COLITIS ULCERATIVE
     Dosage: 80MG QOW
     Route: 058
     Dates: start: 20101201
  3. BACTRIM [Concomitant]
     Indication: PRODUCT USED FOR UNKNOWN INDICATION
     Dosage: DOSE ON MWF Q WEEK
  4. PREDNISONE TAB [Concomitant]
     Indication: COLITIS ULCERATIVE
     Dosage: 20MG + 15 MG ALTERNATING DAYS TAPERING
  5. CYCLOSPORINE [Concomitant]
     Indication: COLITIS ULCERATIVE
     Dosage: DAILY
  6. VENTOLIN [Concomitant]
     Indication: ASTHMA
     Dosage: 2 PUFFS PRN
     Route: 055
  7. AZATHIOPRINE [Concomitant]
     Indication: PRODUCT USED FOR UNKNOWN INDICATION
     Dosage: DAILY
  8. LOMOTIL [Concomitant]
     Indication: PRODUCT USED FOR UNKNOWN INDICATION
     Dosage: 1-2 Q 6 HOURS PRN

REACTIONS (1)
  - INJECTION SITE PAIN [None]
